FAERS Safety Report 8118490-X (Version None)
Quarter: 2012Q1

REPORT INFORMATION
  Report Type: 
  Country: None (occurrence: None)
  Receive Date: 20120207
  Receipt Date: 20120202
  Transmission Date: 20120608
  Serious: Yes (Other)
  Sender: FDA-Public Use
  Company Number: VE-PFIZER INC-2012019599

PATIENT
  Age: 80 Year
  Sex: Male

DRUGS (5)
  1. LIPITOR [Suspect]
     Indication: HYPERCHOLESTEROLAEMIA
     Dosage: 80 MG, 1X/DAY
     Route: 048
     Dates: start: 20110201
  2. LIPITOR [Suspect]
     Indication: HYPERTRIGLYCERIDAEMIA
  3. PLAGRIL [Concomitant]
     Indication: ISCHAEMIA
     Dosage: 75 MG, 1X/DAY
     Route: 048
     Dates: start: 20110101
  4. ATACAND [Concomitant]
     Indication: HYPERTENSION
     Dosage: 32 MG, 1X/DAY
     Route: 048
  5. BISOPROLOL FUMARATE [Concomitant]
     Indication: HYPERTENSION
     Dosage: 5 MG, 1X/DAY
     Route: 048
     Dates: start: 20110101

REACTIONS (1)
  - HYPOTENSION [None]
